FAERS Safety Report 5718222-6 (Version None)
Quarter: 2008Q2

REPORT INFORMATION
  Report Type: 
  Country: None (occurrence: None)
  Receive Date: 20080425
  Receipt Date: 20080417
  Transmission Date: 20081010
  Serious: Yes (Hospitalization)
  Sender: FDA-Public Use
  Company Number: US-ASTRAZENECA-2008UW07905

PATIENT
  Age: 68 Year
  Sex: Female

DRUGS (5)
  1. SEROQUEL [Suspect]
     Indication: BIPOLAR DISORDER
     Route: 048
     Dates: start: 20080301, end: 20080415
  2. DEPAKOTE [Suspect]
     Dates: end: 20080415
  3. METFORMIN HCL [Concomitant]
  4. LANTUS [Concomitant]
  5. PROTONIX [Concomitant]

REACTIONS (2)
  - SOMNOLENCE [None]
  - UNRESPONSIVE TO STIMULI [None]
